FAERS Safety Report 8860317 (Version 1)
Quarter: 2012Q4

REPORT INFORMATION
  Report Type: 
  Country: US (occurrence: US)
  Receive Date: 20121025
  Receipt Date: 20121025
  Transmission Date: 20130627
  Serious: Yes (Hospitalization)
  Sender: FDA-Public Use
  Company Number: US-009507513-1210USA010072

PATIENT
  Sex: Male

DRUGS (1)
  1. SAPHRIS [Suspect]
     Dosage: 5 mg, Once
     Route: 060
     Dates: start: 20121018, end: 20121018

REACTIONS (3)
  - Syncope [Unknown]
  - Hallucination [Unknown]
  - Soliloquy [Unknown]
